FAERS Safety Report 25943480 (Version 1)
Quarter: 2025Q4

REPORT INFORMATION
  Report Type: Spontaneous
  Country: EU (occurrence: EU)
  Receive Date: 20251021
  Receipt Date: 20251021
  Transmission Date: 20260117
  Serious: Yes (Other)
  Sender: NOVARTIS
  Company Number: EU-002147023-NVSC2025RO156766

PATIENT
  Age: 46 Year
  Sex: Female

DRUGS (4)
  1. KISQALI [Suspect]
     Active Substance: RIBOCICLIB SUCCINATE
     Indication: Breast cancer metastatic
     Dosage: 600 MG, QD (200 MG (600 MG/DAY DAILY - DAY 1-21)
     Route: 048
     Dates: start: 202207, end: 202304
  2. KISQALI [Suspect]
     Active Substance: RIBOCICLIB SUCCINATE
     Indication: Metastases to peritoneum
     Dosage: 400 MG, QD (DAILY - DAY  1-21)
     Route: 048
     Dates: start: 202304
  3. LETROZOLE [Concomitant]
     Active Substance: LETROZOLE
     Indication: Breast cancer metastatic
     Dosage: 2.5 MG, QD
     Route: 065
     Dates: start: 202207
  4. LETROZOLE [Concomitant]
     Active Substance: LETROZOLE
     Indication: Metastases to peritoneum

REACTIONS (3)
  - Myelosuppression [Unknown]
  - Neutropenia [Recovered/Resolved]
  - Renal vein thrombosis [Unknown]

NARRATIVE: CASE EVENT DATE: 20230301
